FAERS Safety Report 5787991-1 (Version None)
Quarter: 2008Q2

REPORT INFORMATION
  Report Type: 
  Country: None (occurrence: None)
  Receive Date: 20080625
  Receipt Date: 20080617
  Transmission Date: 20081010
  Serious: Yes (Hospitalization)
  Sender: FDA-Public Use
  Company Number: ES-BRISTOL-MYERS SQUIBB COMPANY-14221105

PATIENT
  Age: 27 Year
  Sex: Female

DRUGS (3)
  1. ENDOXAN [Suspect]
     Indication: SYSTEMIC LUPUS ERYTHEMATOSUS
     Route: 042
     Dates: start: 20070712, end: 20070716
  2. PREDNISONE [Suspect]
     Indication: SYSTEMIC LUPUS ERYTHEMATOSUS
     Route: 042
     Dates: start: 20030101
  3. RITUXIMAB [Suspect]
     Indication: SYSTEMIC LUPUS ERYTHEMATOSUS
     Dosage: TAKEN ON DAY 6, 12, 19.
     Route: 065
     Dates: start: 20070706, end: 20070726

REACTIONS (2)
  - HERPES ZOSTER [None]
  - NEURALGIA [None]
